FAERS Safety Report 15540870 (Version 1)
Quarter: 2018Q4

REPORT INFORMATION
  Report Type: Spontaneous
  Country: PT (occurrence: PT)
  Receive Date: 20181023
  Receipt Date: 20181023
  Transmission Date: 20190205
  Serious: Yes (Disabling)
  Sender: FDA-Public Use
  Company Number: PHHY2018PT130995

PATIENT
  Age: 48 Year
  Sex: Male
  Weight: 67 kg

DRUGS (3)
  1. BISOPROLOL [Suspect]
     Active Substance: BISOPROLOL
     Indication: HYPERTENSION
     Dosage: 5 MG, QD (PATIENT HAS ALREADY MADE SEVERAL BRANDS OF BISOPROLOL. INCREASED DOSE TO 03-2014 W / 7.5MG
     Route: 048
     Dates: start: 201312
  2. APOCARD [Concomitant]
     Active Substance: FLECAINIDE ACETATE
     Indication: ATRIAL FIBRILLATION
     Dosage: 100 MG, QD
     Route: 048
     Dates: start: 201409
  3. VARFINE [Concomitant]
     Active Substance: WARFARIN SODIUM
     Indication: PROPHYLAXIS
     Dosage: 1 DF, (PATIENT TAKES 1 COMP. PER DAY OR 1/2 COMP. DAY AS NEEDED)
     Route: 048
     Dates: start: 201304

REACTIONS (3)
  - Erectile dysfunction [Recovering/Resolving]
  - Peripheral coldness [Recovered/Resolved]
  - Blood cholesterol increased [Recovering/Resolving]

NARRATIVE: CASE EVENT DATE: 20140318
